FAERS Safety Report 6415527-0 (Version None)
Quarter: 2009Q4

REPORT INFORMATION
  Report Type: 
  Country: None (occurrence: None)
  Receive Date: 20091027
  Receipt Date: 20091023
  Transmission Date: 20100525
  Serious: Yes (Other)
  Sender: FDA-Public Use
  Company Number: FR-JNJFOC-20090107089

PATIENT
  Age: 70 Year
  Sex: Male

DRUGS (9)
  1. REMICADE [Suspect]
     Indication: ANKYLOSING SPONDYLITIS
     Route: 042
  2. CELEBREX [Concomitant]
  3. PANTOPRAZOLE SODIUM [Concomitant]
  4. TRAMADOL HCL [Concomitant]
  5. EFFEXOR [Concomitant]
  6. RIVOTRIL [Concomitant]
  7. SALAZOPYRINE [Concomitant]
  8. AZOPT [Concomitant]
  9. TAMSULODINE [Concomitant]

REACTIONS (3)
  - BACK PAIN [None]
  - GAIT DISTURBANCE [None]
  - MONOPARESIS [None]
